FAERS Safety Report 11024261 (Version 1)
Quarter: 2015Q2

REPORT INFORMATION
  Report Type: Spontaneous
  Country: GB (occurrence: GB)
  Receive Date: 20150414
  Receipt Date: 20150414
  Transmission Date: 20150821
  Serious: Yes (Other)
  Sender: FDA-Public Use
  Company Number: GB-AUROBINDO-AUR-APL-2015-03164

PATIENT
  Age: 32 Year
  Sex: Male
  Weight: 118.38 kg

DRUGS (1)
  1. MIRTAZAPINE FILM-COATED TABLETS 30MG (MIRTAZAPINE) FILM-COATED TABLET, 30MG [Suspect]
     Active Substance: MIRTAZAPINE
     Indication: DEPRESSION
     Route: 048
     Dates: start: 20141201

REACTIONS (3)
  - Myalgia [Recovering/Resolving]
  - Back pain [Recovering/Resolving]
  - Pain in extremity [Recovering/Resolving]

NARRATIVE: CASE EVENT DATE: 20141210
